FAERS Safety Report 8160020-0 (Version None)
Quarter: 2012Q1

REPORT INFORMATION
  Report Type: 
  Country: None (occurrence: None)
  Receive Date: 20120223
  Receipt Date: 20120220
  Transmission Date: 20120608
  Serious: Yes (Death)
  Sender: FDA-Public Use
  Company Number: IT-GLAXOSMITHKLINE-B0779538A

PATIENT
  Sex: Female

DRUGS (10)
  1. ARIXTRA [Suspect]
     Indication: ATRIAL FIBRILLATION
     Dosage: 2.5MG PER DAY
     Route: 058
     Dates: start: 20120112, end: 20120126
  2. APIDRA [Concomitant]
     Indication: DIABETES MELLITUS
     Dosage: 24IU PER DAY
     Route: 058
     Dates: start: 20120112, end: 20120127
  3. CITALOPRAM HYDROBROMIDE [Concomitant]
     Indication: DIABETIC FOOT INFECTION
     Route: 042
     Dates: start: 20120112, end: 20120127
  4. RAMIPRIL [Concomitant]
     Indication: ESSENTIAL HYPERTENSION
     Dosage: 25MG PER DAY
     Route: 048
     Dates: start: 20120113, end: 20120127
  5. SURMONTIL [Concomitant]
     Indication: DEPRESSION
     Route: 048
     Dates: start: 20120112, end: 20120126
  6. TYGACIL [Concomitant]
     Indication: DIABETIC FOOT INFECTION
     Dosage: 100MG PER DAY
     Route: 042
     Dates: start: 20120112, end: 20120127
  7. VASERETIC [Concomitant]
  8. LEVOTHYROXINE SODIUM [Concomitant]
     Indication: HYPOTHYROIDISM
     Route: 048
     Dates: start: 20120113, end: 20120127
  9. TOFRANIL [Concomitant]
     Indication: DEPRESSION
     Route: 048
     Dates: start: 20120113, end: 20120127
  10. PRISMA [Concomitant]

REACTIONS (2)
  - RETROPERITONEAL HAEMORRHAGE [None]
  - ABDOMINAL PAIN [None]
